FAERS Safety Report 5293517-1 (Version None)
Quarter: 2007Q2

REPORT INFORMATION
  Report Type: 
  Country: None (occurrence: None)
  Receive Date: 20070411
  Receipt Date: 20070405
  Transmission Date: 20071010
  Serious: Yes (Hospitalization)
  Sender: FDA-Public Use
  Company Number: JP-JPN-A200602655

PATIENT
  Sex: Male
  Weight: 2.9 kg

DRUGS (3)
  1. PAXIL [Suspect]
     Dosage: 10MG FOUR TIMES PER DAY
     Dates: end: 20060707
  2. TRYPTANOL [Concomitant]
     Dosage: 6MG PER DAY
  3. LEXOTAN [Concomitant]
     Dosage: 150MG PER DAY

REACTIONS (10)
  - APGAR SCORE LOW [None]
  - APNOEA [None]
  - DEPRESSION [None]
  - DRUG EXPOSURE DURING PREGNANCY [None]
  - DRUG WITHDRAWAL SYNDROME [None]
  - HYPOTONIA [None]
  - NEONATAL ASPHYXIA [None]
  - NEONATAL DISORDER [None]
  - RESPIRATORY DISORDER [None]
  - SOMNOLENCE [None]
